FAERS Safety Report 11727229 (Version 2)
Quarter: 2016Q1

REPORT INFORMATION
  Report Type: Spontaneous
  Country: US (occurrence: US)
  Receive Date: 20151112
  Receipt Date: 20160129
  Transmission Date: 20160525
  Serious: Yes (Hospitalization)
  Sender: FDA-Public Use
  Company Number: US-ASTRAZENECA-2010BM07451

PATIENT
  Age: 68 Year
  Sex: Male
  Weight: 90.3 kg

DRUGS (19)
  1. BYETTA [Suspect]
     Active Substance: EXENATIDE
     Indication: TYPE 2 DIABETES MELLITUS
     Route: 058
     Dates: start: 2005
  2. ATORVASTATIN [Concomitant]
     Active Substance: ATORVASTATIN
     Indication: BLOOD CHOLESTEROL ABNORMAL
  3. BYETTA [Suspect]
     Active Substance: EXENATIDE
     Indication: TYPE 2 DIABETES MELLITUS
     Route: 058
     Dates: start: 2007, end: 2008
  4. BYETTA [Suspect]
     Active Substance: EXENATIDE
     Indication: TYPE 2 DIABETES MELLITUS
     Route: 058
     Dates: start: 2008
  5. CORTISONE [Concomitant]
     Active Substance: CORTISONE\HYDROCORTISONE
     Indication: ARTHRALGIA
  6. METOPROLOL. [Concomitant]
     Active Substance: METOPROLOL
  7. LISINOPRIL. [Suspect]
     Active Substance: LISINOPRIL
     Indication: BLOOD PRESSURE ABNORMAL
     Route: 048
  8. GLYBURIDE. [Concomitant]
     Active Substance: GLYBURIDE
     Indication: TYPE 2 DIABETES MELLITUS
     Route: 048
     Dates: end: 2005
  9. BYETTA [Suspect]
     Active Substance: EXENATIDE
     Indication: TYPE 2 DIABETES MELLITUS
     Route: 058
  10. METFORMIN [Concomitant]
     Active Substance: METFORMIN HYDROCHLORIDE
     Indication: TYPE 2 DIABETES MELLITUS
     Route: 048
  11. ALEVE [Concomitant]
     Active Substance: NAPROXEN SODIUM
     Indication: ARTHRALGIA
  12. OFLOXACIN. [Concomitant]
     Active Substance: OFLOXACIN
     Indication: ILL-DEFINED DISORDER
  13. GLYBURIDE. [Concomitant]
     Active Substance: GLYBURIDE
     Indication: TYPE 2 DIABETES MELLITUS
     Route: 048
     Dates: start: 2005
  14. GLYBURIDE. [Concomitant]
     Active Substance: GLYBURIDE
     Indication: TYPE 2 DIABETES MELLITUS
     Dosage: DAILY
     Route: 048
  15. AMLODIPINE BESYLATE. [Concomitant]
     Active Substance: AMLODIPINE BESYLATE
     Indication: BLOOD PRESSURE ABNORMAL
  16. AMOXICILLIN. [Concomitant]
     Active Substance: AMOXICILLIN
     Indication: ILL-DEFINED DISORDER
  17. BYETTA [Suspect]
     Active Substance: EXENATIDE
     Indication: TYPE 2 DIABETES MELLITUS
     Route: 058
     Dates: start: 200506, end: 2005
  18. BYETTA [Suspect]
     Active Substance: EXENATIDE
     Indication: TYPE 2 DIABETES MELLITUS
     Route: 058
     Dates: start: 2006, end: 2007
  19. ASPIRIN. [Concomitant]
     Active Substance: ASPIRIN

REACTIONS (13)
  - Arthralgia [Recovered/Resolved]
  - Vomiting [Recovering/Resolving]
  - Drug dose omission [Unknown]
  - Nausea [Not Recovered/Not Resolved]
  - Hypersomnia [Recovered/Resolved]
  - Blood glucose decreased [Recovering/Resolving]
  - Injection site haemorrhage [Recovered/Resolved]
  - Blood glucose increased [Recovered/Resolved]
  - Product quality issue [Unknown]
  - Eustachian tube disorder [Unknown]
  - Flatulence [Recovering/Resolving]
  - Arthropathy [Recovered/Resolved]
  - Eructation [Recovering/Resolving]

NARRATIVE: CASE EVENT DATE: 2005
